FAERS Safety Report 24033099 (Version 2)
Quarter: 2024Q3

REPORT INFORMATION
  Report Type: Report from Study
  Country: US (occurrence: US)
  Receive Date: 20240701
  Receipt Date: 20240718
  Transmission Date: 20241017
  Serious: Yes (Hospitalization, Other)
  Sender: MERCK
  Company Number: US-009507513-2406USA009157

PATIENT
  Age: 46 Year
  Sex: Male

DRUGS (2)
  1. KEYTRUDA [Suspect]
     Active Substance: PEMBROLIZUMAB
     Indication: Lung carcinoma cell type unspecified stage IV
     Dosage: UNK, Q3W
     Dates: start: 202112, end: 20230511
  2. KEYTRUDA [Suspect]
     Active Substance: PEMBROLIZUMAB
     Indication: Metastases to central nervous system

REACTIONS (7)
  - Brain operation [Unknown]
  - Lung carcinoma cell type unspecified recurrent [Unknown]
  - Gamma radiation therapy [Unknown]
  - Back pain [Unknown]
  - Cough [Unknown]
  - Adverse event [Unknown]
  - Therapy cessation [Unknown]

NARRATIVE: CASE EVENT DATE: 20230511
